FAERS Safety Report 18944084 (Version 1)
Quarter: 2021Q1

REPORT INFORMATION
  Report Type: Spontaneous
  Country: US (occurrence: US)
  Receive Date: 20210226
  Receipt Date: 20210226
  Transmission Date: 20210420
  Serious: No
  Sender: FDA-Public Use
  Company Number: US-ASTRAZENECA-2021A071192

PATIENT
  Sex: Female

DRUGS (3)
  1. GABAPENTIN. [Concomitant]
     Active Substance: GABAPENTIN
     Indication: NEURALGIA
     Dosage: 300MG AND 100MG TABLETS
  2. TAGRISSO [Suspect]
     Active Substance: OSIMERTINIB
     Indication: NON-SMALL CELL LUNG CANCER
     Route: 048
     Dates: start: 2017
  3. TAGRISSO [Suspect]
     Active Substance: OSIMERTINIB
     Indication: NON-SMALL CELL LUNG CANCER
     Route: 048

REACTIONS (12)
  - Blister [Unknown]
  - Nail discomfort [Unknown]
  - Neuralgia [Unknown]
  - Vision blurred [Unknown]
  - Balance disorder [Unknown]
  - Heart rate increased [Unknown]
  - Hyperkeratosis [Unknown]
  - Dry skin [Unknown]
  - Limb injury [Unknown]
  - Pain in extremity [Unknown]
  - Dizziness [Unknown]
  - Dyspnoea [Unknown]
